FAERS Safety Report 5352944-4 (Version None)
Quarter: 2007Q2

REPORT INFORMATION
  Report Type: 
  Country: None (occurrence: None)
  Receive Date: 20070607
  Receipt Date: 20070507
  Transmission Date: 20071010
  Serious: Yes (Hospitalization, Other)
  Sender: FDA-Public Use
  Company Number: 4829

PATIENT
  Age: 83 Year
  Sex: Female

DRUGS (1)
  1. WARFARIN, TABLET, 4 MG [Suspect]
     Dosage: 4 MG, QD, PO
     Route: 048

REACTIONS (5)
  - ECCHYMOSIS [None]
  - HYPERCOAGULATION [None]
  - MACULAR DEGENERATION [None]
  - PERIORBITAL DISORDER [None]
  - SKIN NECROSIS [None]
